FAERS Safety Report 7820043-5 (Version None)
Quarter: 2011Q4

REPORT INFORMATION
  Report Type: 
  Country: None (occurrence: None)
  Receive Date: 20111018
  Receipt Date: 20111005
  Transmission Date: 20120403
  Serious: Yes (Other)
  Sender: FDA-Public Use
  Company Number: PHHY2011CA84405

PATIENT
  Sex: Male

DRUGS (1)
  1. ALISKIREN [Suspect]
     Indication: HYPERTENSION
     Dosage: 300 MG,
     Route: 048
     Dates: start: 20100428

REACTIONS (1)
  - URINE ALBUMIN/CREATININE RATIO INCREASED [None]
